FAERS Safety Report 9194276 (Version 2)
Quarter: 2013Q1

REPORT INFORMATION
  Report Type: Report from Study
  Country: CA (occurrence: CA)
  Receive Date: 20130327
  Receipt Date: 20130329
  Transmission Date: 20140127
  Serious: Yes (Hospitalization, Other)
  Sender: FDA-Public Use
  Company Number: CA-ABBOTT-13P-028-1066250-00

PATIENT
  Sex: Female
  Weight: 68 kg

DRUGS (11)
  1. HUMIRA [Suspect]
     Indication: RHEUMATOID ARTHRITIS
     Route: 058
     Dates: start: 20101220, end: 2011
  2. HUMIRA [Suspect]
     Route: 058
     Dates: start: 2011, end: 2011
  3. HUMIRA [Suspect]
     Route: 058
     Dates: start: 2011, end: 2012
  4. HUMIRA [Suspect]
     Route: 058
  5. LOSEC [Concomitant]
     Indication: PRODUCT USED FOR UNKNOWN INDICATION
  6. RAMIPRIL [Concomitant]
     Indication: PRODUCT USED FOR UNKNOWN INDICATION
  7. L-THYROXINE [Concomitant]
     Indication: HYPOTHYROIDISM
  8. DICLOFENAC [Concomitant]
     Indication: PRODUCT USED FOR UNKNOWN INDICATION
  9. LORAZEPAM [Concomitant]
     Indication: PRODUCT USED FOR UNKNOWN INDICATION
  10. PERCOCET [Concomitant]
     Indication: PRODUCT USED FOR UNKNOWN INDICATION
  11. FLORADIX [Concomitant]
     Indication: PRODUCT USED FOR UNKNOWN INDICATION

REACTIONS (8)
  - Procedural complication [Unknown]
  - Supraventricular tachycardia [Unknown]
  - Cardiac failure congestive [Unknown]
  - Atrial fibrillation [Unknown]
  - Osteoarthritis [Unknown]
  - Ileus [Unknown]
  - Aspiration [Unknown]
  - Pulmonary oedema [Unknown]
